FAERS Safety Report 4539181-8 (Version None)
Quarter: 2004Q4

REPORT INFORMATION
  Report Type: 
  Country: None (occurrence: None)
  Receive Date: 20041227
  Receipt Date: 20041227
  Transmission Date: 20050328
  Serious: Yes (Hospitalization)
  Sender: FDA-Public Use
  Company Number: None

PATIENT
  Age: 37 Year
  Sex: Male
  Weight: 102.9665 kg

DRUGS (9)
  1. METHADONE   10MG [Suspect]
     Indication: PAIN
     Dosage: 20MG  Q6H  ORAL
     Route: 048
     Dates: start: 20031210, end: 20041223
  2. ACETAMINOPHEN [Concomitant]
  3. AMITRIPTYLINE [Concomitant]
  4. HYDROCHLOROTHIAZIDE [Concomitant]
  5. OMEPRAZOLE [Concomitant]
  6. PROCHLORPERAZINE [Concomitant]
  7. TIZANIDINE HCL [Concomitant]
  8. TOPIRAMATE [Concomitant]
  9. TRIAMCINOLONE [Concomitant]

REACTIONS (2)
  - MENTAL STATUS CHANGES [None]
  - SOMNOLENCE [None]
